FAERS Safety Report 9836599 (Version 1)
Quarter: 2013Q4

REPORT INFORMATION
  Report Type: Spontaneous
  Country: US (occurrence: None)
  Receive Date: 20131120
  Receipt Date: 20131120
  Transmission Date: 20140711
  Serious: No
  Sender: FDA-Public Use
  Company Number: 1000049362

PATIENT
  Age: 47 Year
  Sex: Male

DRUGS (6)
  1. VIIBRYD (VILAZODONE HYDROCHLORIDE) (10 MILLIGRAM, TABLETS) [Suspect]
     Indication: DEPRESSION
     Dosage: 10 MG (10 MG, 1 IN 1 D), ORAL
     Dates: start: 2013, end: 2013
  2. VIIBRYD (VILAZODONE HYDROCHLORIDE) (10 MILLIGRAM, TABLETS) [Suspect]
     Indication: ANXIETY
     Dosage: 10 MG (10 MG, 1 IN 1 D), ORAL
     Dates: start: 2013, end: 2013
  3. VIIBRYD (VILAZODONE HYDROCHLORIDE) (40 MILLIGRAM, TABLETS) [Suspect]
     Indication: DEPRESSION
     Dosage: 40 MG (40 MG, 1 IN 1 D), ORAL
     Route: 048
     Dates: start: 2013, end: 2013
  4. VIIBRYD (VILAZODONE HYDROCHLORIDE) (40 MILLIGRAM, TABLETS) [Suspect]
     Indication: ANXIETY
     Dosage: 40 MG (40 MG, 1 IN 1 D), ORAL
     Route: 048
     Dates: start: 2013, end: 2013
  5. SYNTHROID (LEVOTHROXINE SOIDUM) (LEVOTHYROXINE SODIUM) [Concomitant]
  6. HIGH CHOLESTEROL MEDICATION NOS (HIGH CHOLESTEROL MEDICATION NOS) (HIGH CHOLESTEROL MEDICATION NOS)? [Concomitant]

REACTIONS (6)
  - Restlessness [None]
  - Disturbance in attention [None]
  - Nausea [None]
  - Fatigue [None]
  - Libido decreased [None]
  - Lethargy [None]
